FAERS Safety Report 5573863-4 (Version None)
Quarter: 2007Q4

REPORT INFORMATION
  Report Type: 
  Country: None (occurrence: None)
  Receive Date: 20071226
  Receipt Date: 20071213
  Transmission Date: 20080405
  Serious: Yes (Hospitalization)
  Sender: FDA-Public Use
  Company Number: GB-RANBAXY-2007RR-12078

PATIENT

DRUGS (6)
  1. FUROSEMIDE TABLETS BP 40MG [Suspect]
     Indication: OEDEMA PERIPHERAL
     Dosage: 40 MG, UNK
  2. DIGOXIN [Suspect]
     Indication: ATRIAL FIBRILLATION
     Dosage: 187.5 UG, UNK
  3. DIGOXIN [Suspect]
     Dosage: 125 UG, QD
  4. PERINDOPRIL [Concomitant]
     Indication: ATRIAL FIBRILLATION
     Dosage: 8 MG, QD
  5. WARFARIN SODIUM [Concomitant]
     Indication: ANTICOAGULANT THERAPY
     Dosage: 5 MG, QD
  6. MAGNESIUM GLYCEROPHOSPHATE [Concomitant]
     Route: 048

REACTIONS (4)
  - DRUG INTERACTION [None]
  - HYPOMAGNESAEMIA [None]
  - NAUSEA [None]
  - VOMITING [None]
